FAERS Safety Report 8797380 (Version 2)
Quarter: 2012Q4

REPORT INFORMATION
  Report Type: 
  Country: NO (occurrence: NO)
  Receive Date: 20120920
  Receipt Date: 20121218
  Transmission Date: 20130627
  Serious: Yes (Other)
  Sender: FDA-Public Use
  Company Number: NO-009507513-1209NOR007711

PATIENT
  Age: 62 Year
  Sex: Male

DRUGS (7)
  1. SIMVASTATIN [Suspect]
     Dosage: 40 mg, UNK
     Dates: start: 20080821, end: 201205
  2. METFORMIN HYDROCHLORIDE [Concomitant]
     Dosage: UNK
  3. CARVEDILOL [Concomitant]
     Dosage: 25 mg, 2 DF in the morning and 2 DF in the evening
     Dates: start: 20081002
  4. AERIUS [Concomitant]
     Indication: HYPERSENSITIVITY
     Dosage: UNK
  5. ALBYL-E [Concomitant]
     Dosage: UNK
     Dates: start: 20031204
  6. FAMOTIDINE [Concomitant]
     Dosage: UNK
     Dates: start: 20081016
  7. FELODIPINE [Concomitant]
     Dosage: 5 mg, UNK
     Dates: start: 20010215

REACTIONS (5)
  - Chromaturia [Unknown]
  - Urinary bladder haemorrhage [Unknown]
  - Urinary bladder haemorrhage [Unknown]
  - Myositis [Unknown]
  - Blood urine present [Unknown]
